FAERS Safety Report 19894896 (Version 2)
Quarter: 2021Q4

REPORT INFORMATION
  Report Type: Spontaneous
  Country: IT (occurrence: IT)
  Receive Date: 20210928
  Receipt Date: 20211112
  Transmission Date: 20220303
  Serious: Yes (Hospitalization, Other)
  Sender: FDA-Public Use
  Company Number: IT-ALXN-A202110641

PATIENT
  Sex: Female

DRUGS (1)
  1. SOLIRIS [Suspect]
     Active Substance: ECULIZUMAB
     Indication: Product used for unknown indication
     Dosage: NOT AVAILABLE
     Route: 065

REACTIONS (1)
  - Hospitalisation [Not Recovered/Not Resolved]
